FAERS Safety Report 8370111-7 (Version None)
Quarter: 2012Q2

REPORT INFORMATION
  Report Type: 
  Country: None (occurrence: None)
  Receive Date: 20120518
  Receipt Date: 20120510
  Transmission Date: 20120825
  Serious: Yes (Hospitalization, Other)
  Sender: FDA-Public Use
  Company Number: GB-B.I. PHARMACEUTICALS,INC./RIDGEFIELD-2012-UK-00451UK

PATIENT
  Sex: Male
  Weight: 115 kg

DRUGS (7)
  1. PRADAXA [Suspect]
     Route: 048
     Dates: start: 20120426
  2. PRAVASTATIN [Concomitant]
     Route: 048
     Dates: start: 19950101
  3. INSULIN [Concomitant]
     Route: 058
     Dates: start: 19950101
  4. DIGOXIN [Concomitant]
     Route: 048
     Dates: start: 19950101
  5. PRADAXA [Suspect]
     Indication: ATRIAL FIBRILLATION
     Dosage: 110 MG
     Route: 048
     Dates: start: 20070101, end: 20120201
  6. CARVEDILOL [Concomitant]
     Route: 048
     Dates: start: 19950101
  7. METFORMIN HCL [Concomitant]
     Route: 048
     Dates: start: 19950101

REACTIONS (3)
  - MUSCULAR WEAKNESS [None]
  - DYSARTHRIA [None]
  - HAEMORRHAGE INTRACRANIAL [None]
